FAERS Safety Report 12428763 (Version 2)
Quarter: 2016Q2

REPORT INFORMATION
  Report Type: Spontaneous
  Country: US (occurrence: US)
  Receive Date: 20160602
  Receipt Date: 20160628
  Transmission Date: 20160815
  Serious: Yes (Other)
  Sender: FDA-Public Use
  Company Number: US-BAYER-2016-100430

PATIENT
  Age: 58 Year
  Sex: Female
  Weight: 56.68 kg

DRUGS (1)
  1. ALEVE [Suspect]
     Active Substance: NAPROXEN SODIUM
     Indication: HEADACHE
     Dosage: 1 DF, PRN
     Route: 048

REACTIONS (5)
  - Frustration tolerance decreased [None]
  - Product container issue [None]
  - Pain [None]
  - Product package associated injury [Recovered/Resolved]
  - Traumatic haemorrhage [Recovered/Resolved]
